FAERS Safety Report 16659913 (Version 1)
Quarter: 2019Q3

REPORT INFORMATION
  Report Type: Spontaneous
  Country: FR (occurrence: FR)
  Receive Date: 20190802
  Receipt Date: 20190802
  Transmission Date: 20191004
  Serious: Yes (Hospitalization)
  Sender: FDA-Public Use
  Company Number: FR-TEVA-2019-FR-1086265

PATIENT
  Age: 35 Year
  Sex: Male

DRUGS (2)
  1. TRAMADOL (CHLORHYDRATE DE) [Suspect]
     Active Substance: TRAMADOL HYDROCHLORIDE
     Route: 065
  2. PRAZEPAM [Suspect]
     Active Substance: PRAZEPAM
     Route: 065

REACTIONS (2)
  - Drug dependence [Recovering/Resolving]
  - Drug withdrawal convulsions [Recovered/Resolved]
